FAERS Safety Report 5925410-2 (Version None)
Quarter: 2008Q4

REPORT INFORMATION
  Report Type: 
  Country: None (occurrence: None)
  Receive Date: 20081020
  Receipt Date: 20081020
  Transmission Date: 20090506
  Serious: Yes (Disabling, Other)
  Sender: FDA-Public Use
  Company Number: None

PATIENT
  Age: 40 Year
  Sex: Female
  Weight: 113.3993 kg

DRUGS (1)
  1. LEVAQUIN [Suspect]
     Indication: WOUND INFECTION
     Dosage: 500 MG DAILY PO
     Route: 048
     Dates: start: 20081010, end: 20081017

REACTIONS (2)
  - ARTHRALGIA [None]
  - PAIN IN EXTREMITY [None]
